FAERS Safety Report 9226266 (Version 1)
Quarter: 2013Q2

REPORT INFORMATION
  Report Type: Spontaneous
  Country: DE (occurrence: DE)
  Receive Date: 20130411
  Receipt Date: 20130411
  Transmission Date: 20140414
  Serious: Yes (Other)
  Sender: FDA-Public Use
  Company Number: DE-LUNDBECK-DKLU1090055

PATIENT
  Age: 28 Year
  Sex: Female

DRUGS (9)
  1. ONFI [Suspect]
     Indication: EPILEPSY
     Route: 048
     Dates: end: 20090213
  2. LAMOTRIGINE [Suspect]
     Indication: EPILEPSY
     Route: 048
     Dates: end: 20090206
  3. ERGENYL CHRONO [Suspect]
     Indication: EPILEPSY
     Route: 048
     Dates: end: 20081231
  4. KEPPRA [Concomitant]
     Indication: EPILEPSY
     Dates: end: 20090213
  5. PHENHYDAN [Concomitant]
     Indication: EPILEPSY
     Dates: end: 20090213
  6. LUMINAL [Concomitant]
     Indication: EPILEPSY
     Dates: end: 20090213
  7. TAVOR [Concomitant]
     Indication: SLEEP DISORDER
     Dates: start: 200809, end: 20090206
  8. VIMPAT [Concomitant]
     Indication: EPILEPSY
     Dates: end: 20090204
  9. THYROXIN [Concomitant]
     Indication: HYPOTHYROIDISM
     Dates: start: 200809, end: 200902

REACTIONS (1)
  - Weight decreased [Unknown]
